FAERS Safety Report 10115040 (Version 2)
Quarter: 2015Q1

REPORT INFORMATION
  Report Type: Other
  Country: None (occurrence: US)
  Receive Date: 20140426
  Receipt Date: 20150204
  Transmission Date: 20150720
  Serious: Yes (Death, Hospitalization, Other)
  Sender: FDA-Public Use
  Company Number: US-GSKPPD-2014GSK016103

PATIENT
  Age: 57 Year
  Sex: Female
  Weight: 122.58 kg

DRUGS (9)
  1. ACCOLATE [Concomitant]
     Active Substance: ZAFIRLUKAST
  2. FOSAMAX [Concomitant]
     Active Substance: ALENDRONATE SODIUM
  3. CIPRO [Suspect]
     Active Substance: CIPROFLOXACIN HYDROCHLORIDE
  4. AVANDIA [Suspect]
     Active Substance: ROSIGLITAZONE MALEATE
     Indication: DIABETES MELLITUS
     Dosage: AVANDIA WAS NOT LISTED AMONG THE PATIENTS RECORDS REVIEWED
     Route: 048
  5. ALBUTEROL. [Concomitant]
     Active Substance: ALBUTEROL
  6. ATROVENT [Concomitant]
     Active Substance: IPRATROPIUM BROMIDE
  7. FUROSEMIDE. [Concomitant]
     Active Substance: FUROSEMIDE
  8. PREDNISONE. [Concomitant]
     Active Substance: PREDNISONE
  9. FLONASE [Concomitant]
     Active Substance: FLUTICASONE PROPIONATE

REACTIONS (3)
  - Myocardial infarction [Unknown]
  - Cardiac failure [Fatal]
  - Cardiac failure congestive [Recovered/Resolved]

NARRATIVE: CASE EVENT DATE: 20020127
